FAERS Safety Report 15272608 (Version 1)
Quarter: 2018Q3

REPORT INFORMATION
  Report Type: Spontaneous
  Country: US (occurrence: US)
  Receive Date: 20180813
  Receipt Date: 20180813
  Transmission Date: 20181010
  Serious: Yes (Other)
  Sender: FDA-Public Use
  Company Number: US-ALEXION-A201810243

PATIENT
  Age: 15 Year
  Sex: Female
  Weight: 60 kg

DRUGS (1)
  1. SOLIRIS [Suspect]
     Active Substance: ECULIZUMAB
     Indication: PAROXYSMAL NOCTURNAL HAEMOGLOBINURIA
     Dosage: 900 MG, Q2W
     Route: 042

REACTIONS (6)
  - Haemoglobin decreased [Unknown]
  - Drug ineffective [Unknown]
  - Fibrin degradation products increased [Unknown]
  - Haptoglobin abnormal [Unknown]
  - Blood lactate dehydrogenase abnormal [Unknown]
  - Fatigue [Unknown]
